FAERS Safety Report 6288493-9 (Version None)
Quarter: 2009Q3

REPORT INFORMATION
  Report Type: 
  Country: None (occurrence: None)
  Receive Date: 20090727
  Receipt Date: 20061027
  Transmission Date: 20100115
  Serious: Yes (Other)
  Sender: FDA-Public Use
  Company Number: FR-GUERBET-20060117

PATIENT
  Age: 54 Year
  Sex: Male
  Weight: 31.7518 kg

DRUGS (1)
  1. HEXABRIX [Suspect]
     Indication: ANGIOGRAM
     Dosage: 150, ML MILLILITRE(S), L, 1, DAYS INTRA-ARTERIAL
     Route: 013
     Dates: start: 20061019

REACTIONS (5)
  - BRONCHOSPASM [None]
  - FEELING HOT [None]
  - HYPERSENSITIVITY [None]
  - SNEEZING [None]
  - SWELLING FACE [None]
